FAERS Safety Report 10067336 (Version 1)
Quarter: 2014Q2

REPORT INFORMATION
  Report Type: Spontaneous
  Country: PT (occurrence: None)
  Receive Date: 20140407
  Receipt Date: 20140407
  Transmission Date: 20141212
  Serious: Yes (Other)
  Sender: FDA-Public Use
  Company Number: AUR-APL-2014-04054

PATIENT
  Age: 42 Year
  Sex: Female

DRUGS (7)
  1. MOXIFLOXACIN (MOXIFLOXACIN) [Suspect]
     Indication: TUBERCULOSIS
  2. ISONIAZID (ISONIAZID) [Suspect]
     Indication: TUBERCULOSIS
  3. PYRAZINAMIDE (PYRAZINAMIDE) [Suspect]
     Indication: TUBERCULOSIS
  4. ETHAMBUTOL (ETHAMBUTOL) [Suspect]
     Indication: TUBERCULOSIS
  5. RIFAMPICIN (RIFAMPICIN) [Suspect]
     Indication: TUBERCULOSIS
  6. ETHIONAMIDE (ETHIONAMIDE) [Suspect]
     Indication: TUBERCULOSIS
  7. STREPTOMYCIN [Suspect]
     Indication: TUBERCULOSIS

REACTIONS (6)
  - Pyrexia [None]
  - Rash generalised [None]
  - Hepatotoxicity [None]
  - Malaise [None]
  - Dizziness [None]
  - Hypersensitivity [None]
